FAERS Safety Report 8925466 (Version 1)
Quarter: 2012Q4

REPORT INFORMATION
  Report Type: 
  Country: US (occurrence: US)
  Receive Date: 20121126
  Receipt Date: 20121126
  Transmission Date: 20130627
  Serious: Yes (Hospitalization)
  Sender: FDA-Public Use
  Company Number: US-GILEAD-2012-0065057

PATIENT
  Age: 16 Year
  Sex: Female

DRUGS (1)
  1. LETAIRIS [Suspect]
     Indication: PULMONARY HYPERTENSION
     Dosage: 10 mg, QD
     Route: 048
     Dates: start: 20120814

REACTIONS (5)
  - Pulmonary function test decreased [Unknown]
  - Ovarian cyst [Unknown]
  - Platelet count decreased [Unknown]
  - Anaemia [Unknown]
  - Abdominal pain [Recovered/Resolved]
